FAERS Safety Report 18850144 (Version 1)
Quarter: 2021Q1

REPORT INFORMATION
  Report Type: Spontaneous
  Country: AU (occurrence: AU)
  Receive Date: 20210204
  Receipt Date: 20210204
  Transmission Date: 20210420
  Serious: Yes (Other)
  Sender: FDA-Public Use
  Company Number: AU-GLAXOSMITHKLINE-AUCH2021APC002230

PATIENT
  Age: 52 Year
  Sex: Male

DRUGS (1)
  1. ADVIL [Suspect]
     Active Substance: IBUPROFEN
     Indication: PRODUCT USED FOR UNKNOWN INDICATION
     Dosage: UNK

REACTIONS (6)
  - Product physical issue [Unknown]
  - Hypoaesthesia oral [Unknown]
  - Oral discomfort [Unknown]
  - Tongue discomfort [Unknown]
  - Product taste abnormal [Unknown]
  - Burn oral cavity [Unknown]
